FAERS Safety Report 8096748-0 (Version None)
Quarter: 2012Q1

REPORT INFORMATION
  Report Type: 
  Country: None (occurrence: None)
  Receive Date: 20120129
  Receipt Date: 20111205
  Transmission Date: 20120608
  Serious: No
  Sender: FDA-Public Use
  Company Number: US-ABBOTT-11P-163-0856357-00

PATIENT
  Sex: Female

DRUGS (4)
  1. HUMIRA [Suspect]
     Indication: CROHN'S DISEASE
     Dosage: 40 MG EVERY OTHER WEEKS
     Dates: start: 20110914
  2. VITAMIN TAB [Concomitant]
     Indication: PRODUCT USED FOR UNKNOWN INDICATION
     Dosage: DAILY
  3. IMURAN [Concomitant]
     Indication: CROHN'S DISEASE
     Dosage: UNSURE OF THE DOSE BID
  4. HUMIRA [Suspect]

REACTIONS (4)
  - INJECTION SITE PAIN [None]
  - INJECTION SITE REACTION [None]
  - INJECTION SITE HAEMATOMA [None]
  - INJECTION SITE DISCOMFORT [None]
